FAERS Safety Report 4693492-4 (Version None)
Quarter: 2005Q2

REPORT INFORMATION
  Report Type: 
  Country: None (occurrence: None)
  Receive Date: 20050617
  Receipt Date: 20050609
  Transmission Date: 20051028
  Serious: Yes (Other)
  Sender: FDA-Public Use
  Company Number: PHNR2005AU00975

PATIENT
  Age: 30 Year
  Sex: Male

DRUGS (5)
  1. CLOZARIL [Suspect]
     Dosage: 200-700 MG DAILY
     Dates: start: 20040129
  2. RISPERIDONE [Concomitant]
     Dosage: 75 MG Q2WK
  3. PANTOPRAZOLE [Concomitant]
     Dosage: 40 MG QD
  4. LITHIUM [Concomitant]
  5. BUSPIRONE HCL [Concomitant]
     Dosage: 10 MG TDS

REACTIONS (7)
  - CARDIOMYOPATHY [None]
  - DRUG LEVEL INCREASED [None]
  - EJECTION FRACTION DECREASED [None]
  - HYPERTENSION [None]
  - HYPOKINESIA [None]
  - NEUTROPHILIA [None]
  - VENTRICULAR DYSFUNCTION [None]
